FAERS Safety Report 5231928-0 (Version None)
Quarter: 2007Q1

REPORT INFORMATION
  Report Type: 
  Country: None (occurrence: None)
  Receive Date: 20070206
  Receipt Date: 20070125
  Transmission Date: 20070707
  Serious: Yes (Other)
  Sender: FDA-Public Use
  Company Number: US-PFIZER INC-2007007261

PATIENT
  Age: 73 Year
  Sex: Female

DRUGS (4)
  1. VERAPAMIL HYDROCHLORIDE [Suspect]
     Indication: HYPERTENSION
  2. METOPROLOL SUCCINATE [Suspect]
     Indication: HYPERTENSION
  3. MOEXIPRIL HCL [Suspect]
     Indication: HYPERTENSION
  4. FUROSEMIDE [Suspect]
     Indication: HYPERTENSION

REACTIONS (3)
  - ASTHENIA [None]
  - HYPOTENSION [None]
  - SINUS BRADYCARDIA [None]
